FAERS Safety Report 7118491-4 (Version None)
Quarter: 2010Q4

REPORT INFORMATION
  Report Type: 
  Country: None (occurrence: None)
  Receive Date: 20101021
  Receipt Date: 20090910
  Transmission Date: 20110411
  Serious: Yes (Other)
  Sender: FDA-Public Use
  Company Number: 2009BH013975

PATIENT
  Sex: Male

DRUGS (1)
  1. GAMMAGARD LIQUID [Suspect]
     Indication: IMMUNODEFICIENCY
     Dosage: 50 GM;EVERY 4 WK;IV
     Route: 042
     Dates: start: 20070101

REACTIONS (1)
  - PROSTATIC SPECIFIC ANTIGEN INCREASED [None]
